FAERS Safety Report 6764984-9 (Version None)
Quarter: 2010Q2

REPORT INFORMATION
  Report Type: 
  Country: None (occurrence: None)
  Receive Date: 20100610
  Receipt Date: 20100530
  Transmission Date: 20101027
  Serious: Yes (Other)
  Sender: FDA-Public Use
  Company Number: PHHY2010DE35673

PATIENT
  Sex: Male
  Weight: 55 kg

DRUGS (5)
  1. ACLASTA/ZOLEDRONATE T29581+A++OS [Suspect]
     Indication: OSTEOPOROSIS
     Dosage: 5 MG, ONCE YEARLY
     Route: 042
     Dates: start: 20100208, end: 20100208
  2. CALCIUM CARBONATE [Concomitant]
     Indication: OSTEOPOROSIS
     Dosage: 800 I.E.
  3. VITAMIN D [Concomitant]
     Indication: OSTEOPOROSIS
     Dosage: 1000 MG
  4. FALITHROM [Concomitant]
     Indication: ARRHYTHMIA
  5. VALORON [Concomitant]
     Indication: PAIN
     Dosage: 50/4 MG
     Dates: start: 20100528

REACTIONS (2)
  - PAIN [None]
  - SPINAL FRACTURE [None]
